FAERS Safety Report 15223279 (Version 13)
Quarter: 2020Q3

REPORT INFORMATION
  Report Type: Report from Study
  Country: US (occurrence: US)
  Receive Date: 20180731
  Receipt Date: 20200713
  Transmission Date: 20201102
  Serious: Yes (Hospitalization, Other)
  Sender: FDA-Public Use
  Company Number: US-ACTELION-A-NJ2017-161003

PATIENT
  Sex: Female
  Weight: 54.42 kg

DRUGS (8)
  1. VELETRI [Suspect]
     Active Substance: EPOPROSTENOL
     Dosage: 25 NG/KG, PER MIN
     Route: 042
  2. VELETRI [Suspect]
     Active Substance: EPOPROSTENOL
     Dosage: 24 NG/KG, PER MIN
     Route: 042
  3. VELETRI [Suspect]
     Active Substance: EPOPROSTENOL
     Dosage: 9 NG/KG, PER MIN
     Route: 042
  4. SILDENAFIL. [Concomitant]
     Active Substance: SILDENAFIL
  5. VELETRI [Suspect]
     Active Substance: EPOPROSTENOL
     Indication: PULMONARY HYPERTENSION
     Dosage: 30 NG/KG, PER MIN
     Route: 042
  6. VELETRI [Suspect]
     Active Substance: EPOPROSTENOL
     Dosage: 28 NG/KG, PER MIN
     Route: 042
  7. VELETRI [Suspect]
     Active Substance: EPOPROSTENOL
     Dosage: 23 NG/KG, PER MIN
     Route: 042
  8. VELETRI [Suspect]
     Active Substance: EPOPROSTENOL
     Dosage: 6 NG/KG, PER MIN
     Route: 042

REACTIONS (26)
  - Trismus [Unknown]
  - Nausea [Unknown]
  - Flushing [Unknown]
  - Pain in extremity [Unknown]
  - Head discomfort [Unknown]
  - Pruritus [Unknown]
  - Dyspnoea [Recovering/Resolving]
  - Photophobia [Unknown]
  - Catheter management [Unknown]
  - Adrenal insufficiency [Unknown]
  - Blood pressure abnormal [Unknown]
  - Dizziness [Unknown]
  - Catheter site infection [Unknown]
  - Catheter site discharge [Unknown]
  - Hepatic cirrhosis [Unknown]
  - Hypersensitivity [Unknown]
  - Fatigue [Unknown]
  - Diarrhoea [Unknown]
  - Vomiting [Unknown]
  - Dyspnoea exertional [Not Recovered/Not Resolved]
  - Device related infection [Unknown]
  - Headache [Unknown]
  - Abdominal pain upper [Unknown]
  - Illness [Unknown]
  - Cholelithiasis [Unknown]
  - Pain in jaw [Unknown]
